FAERS Safety Report 4665433-7 (Version None)
Quarter: 2005Q2

REPORT INFORMATION
  Report Type: 
  Country: None (occurrence: None)
  Receive Date: 20050517
  Receipt Date: 20050428
  Transmission Date: 20051028
  Serious: Yes (Hospitalization, Other)
  Sender: FDA-Public Use
  Company Number: USA050496801

PATIENT
  Age: 84 Year
  Sex: Male
  Weight: 57 kg

DRUGS (4)
  1. CIALIS [Suspect]
     Indication: ERECTILE DYSFUNCTION
     Dosage: 20 MG
     Dates: start: 20040101
  2. NORVASC [Concomitant]
  3. LISINOPRIL [Concomitant]
  4. TOPROL-XL [Concomitant]

REACTIONS (3)
  - CARDIAC DISORDER [None]
  - DIZZINESS [None]
  - HEART RATE IRREGULAR [None]
